FAERS Safety Report 6366748-7 (Version None)
Quarter: 2009Q3

REPORT INFORMATION
  Report Type: 
  Country: None (occurrence: None)
  Receive Date: 20090915
  Receipt Date: 20090908
  Transmission Date: 20100115
  Serious: Yes (Hospitalization)
  Sender: FDA-Public Use
  Company Number: 2009AL005886

PATIENT
  Age: 16 Month
  Sex: Male

DRUGS (4)
  1. NAPROXEN [Suspect]
     Indication: JUVENILE ARTHRITIS
     Dosage: 17 MG/KG ;QD
  2. TRIAMCINOLONE [Concomitant]
  3. HEXACETONIDE [Concomitant]
  4. FERROUS FUMARATE [Concomitant]

REACTIONS (14)
  - ALPHA-1 ANTI-TRYPSIN INCREASED [None]
  - ASCITES [None]
  - CARDIAC MURMUR [None]
  - FAECES DISCOLOURED [None]
  - HEART RATE INCREASED [None]
  - HYPOALBUMINAEMIA [None]
  - IRON DEFICIENCY ANAEMIA [None]
  - OCCULT BLOOD POSITIVE [None]
  - OEDEMA [None]
  - PERIORBITAL OEDEMA [None]
  - PLATELET COUNT INCREASED [None]
  - RESPIRATORY RATE INCREASED [None]
  - WEIGHT INCREASED [None]
  - WHITE BLOOD CELL COUNT INCREASED [None]
